FAERS Safety Report 4766164-5 (Version None)
Quarter: 2005Q3

REPORT INFORMATION
  Report Type: 
  Country: None (occurrence: None)
  Receive Date: 20050912
  Receipt Date: 20050509
  Transmission Date: 20060218
  Serious: Yes (Hospitalization)
  Sender: FDA-Public Use
  Company Number: US-MERCK-0505USA01053

PATIENT
  Age: 45 Year
  Sex: Female
  Weight: 119 kg

DRUGS (4)
  1. VIOXX [Suspect]
     Indication: BACK PAIN
     Route: 048
     Dates: start: 20000101, end: 20020101
  2. VIOXX [Suspect]
     Route: 048
     Dates: start: 20020101, end: 20030423
  3. PREMARIN [Concomitant]
     Route: 065
  4. NAPROXEN [Concomitant]
     Route: 065
     Dates: start: 19980101

REACTIONS (19)
  - BLOOD CHOLESTEROL INCREASED [None]
  - BLOOD TRIGLYCERIDES INCREASED [None]
  - CHEST PAIN [None]
  - CORONARY ARTERY DISEASE [None]
  - DEPRESSION [None]
  - GASTROOESOPHAGEAL REFLUX DISEASE [None]
  - HEART RATE IRREGULAR [None]
  - HYPERTENSION [None]
  - INTERVERTEBRAL DISC DEGENERATION [None]
  - MYOCARDIAL INFARCTION [None]
  - OBESITY [None]
  - OEDEMA [None]
  - OSTEOARTHRITIS [None]
  - PANIC DISORDER [None]
  - POLYTRAUMATISM [None]
  - SLEEP APNOEA SYNDROME [None]
  - THYROID DISORDER [None]
  - ULCER [None]
  - UMBILICAL HERNIA [None]
